FAERS Safety Report 9348948 (Version 1)
Quarter: 2013Q2

REPORT INFORMATION
  Report Type: Spontaneous
  Country: RO (occurrence: RO)
  Receive Date: 20130614
  Receipt Date: 20130614
  Transmission Date: 20140414
  Serious: Yes (Hospitalization, Disabling, Other)
  Sender: FDA-Public Use
  Company Number: RO-009507513-1306ROM004788

PATIENT
  Age: 67 Year
  Sex: Female

DRUGS (3)
  1. FOSAMAX [Suspect]
     Indication: OSTEOPOROSIS
     Dosage: 70 MG, QW
     Route: 048
     Dates: start: 2008, end: 201305
  2. VITABIOTICS OSTEOCARE TABLETS (CALCIUM CARBONATE (+) CHOLECALCIFEROL ( [Concomitant]
     Indication: OSTEOPOROSIS
     Dosage: 2/DAY, BID
     Route: 048
     Dates: start: 2008
  3. OMEZ [Concomitant]
     Indication: PROPHYLAXIS
     Dosage: 2 X 20 MG DAILY DOSE
     Route: 048
     Dates: start: 2009

REACTIONS (5)
  - Stress fracture [Recovering/Resolving]
  - Spinal fracture [Unknown]
  - Hypertension [Unknown]
  - Deep vein thrombosis [Unknown]
  - Post thrombotic syndrome [Unknown]
